FAERS Safety Report 14780810 (Version 2)
Quarter: 2018Q2

REPORT INFORMATION
  Report Type: Report from Study
  Country: JP (occurrence: JP)
  Receive Date: 20180419
  Receipt Date: 20180427
  Transmission Date: 20180711
  Serious: Yes (Hospitalization, Other)
  Sender: FDA-Public Use
  Company Number: JP-GLAXOSMITHKLINE-JP2018JPN063554

PATIENT
  Age: 0 Year
  Sex: Female
  Weight: 2.42 kg

DRUGS (9)
  1. ISENTRESS [Suspect]
     Active Substance: RALTEGRAVIR POTASSIUM
     Indication: HIV INFECTION
     Dosage: 800 MG, 1D
     Route: 064
     Dates: start: 20170301, end: 20170529
  2. ZIDOVUDINE. [Suspect]
     Active Substance: ZIDOVUDINE
     Dosage: 3 MG, BID
     Route: 042
     Dates: start: 20170529, end: 20170531
  3. ZIAGEN [Suspect]
     Active Substance: ABACAVIR SULFATE
     Indication: HIV INFECTION
     Dosage: 300 MG, BID
     Route: 064
     Dates: start: 20170426, end: 20170529
  4. ZIDOVUDINE. [Suspect]
     Active Substance: ZIDOVUDINE
     Dosage: 4 MG, BID
     Route: 048
     Dates: start: 20170620, end: 20170627
  5. ABACAVIR SULFATE + LAMIVUDINE [Suspect]
     Active Substance: ABACAVIR SULFATE\LAMIVUDINE
     Indication: HIV INFECTION
     Dosage: 1 DF, QD
     Route: 064
     Dates: start: 20170301, end: 20170425
  6. EPIVIR [Suspect]
     Active Substance: LAMIVUDINE
     Indication: HIV INFECTION
     Dosage: 150 MG, BID
     Route: 064
     Dates: start: 20170426, end: 20170529
  7. KAYTWO [Concomitant]
     Active Substance: MENATETRENONE
     Dosage: 1 ML, QD
     Dates: start: 20170603, end: 20170603
  8. KAYTWO [Concomitant]
     Active Substance: MENATETRENONE
     Dosage: 1 ML, QD
     Dates: start: 20170626, end: 20170626
  9. ZIDOVUDINE. [Suspect]
     Active Substance: ZIDOVUDINE
     Dosage: 4 MG, BID
     Route: 048
     Dates: start: 20170601, end: 20170613

REACTIONS (3)
  - Neutropenia [Recovered/Resolved]
  - Skull fracture [Recovered/Resolved]
  - Foetal exposure during pregnancy [Unknown]

NARRATIVE: CASE EVENT DATE: 20170301
